FAERS Safety Report 20068347 (Version 1)
Quarter: 2021Q4

REPORT INFORMATION
  Report Type: Spontaneous
  Country: CA (occurrence: CA)
  Receive Date: 20211115
  Receipt Date: 20211115
  Transmission Date: 20220303
  Serious: Yes (Other)
  Sender: FDA-Public Use
  Company Number: CA-TEVA-2021-CA-1976290

PATIENT
  Age: 54 Year
  Sex: Male
  Weight: 84 kg

DRUGS (5)
  1. METHOTREXATE [Suspect]
     Active Substance: METHOTREXATE
     Indication: Product used for unknown indication
     Route: 065
  2. INFLIXIMAB [Suspect]
     Active Substance: INFLIXIMAB
     Indication: Colitis ulcerative
     Route: 042
  3. AMLODIPINE BESILATE/PERINDOPRILERBUMINE [Concomitant]
  4. MESALAMINE [Concomitant]
     Active Substance: MESALAMINE
  5. PENICILLIN [Concomitant]
     Active Substance: PENICILLIN

REACTIONS (4)
  - Limb injury [Recovered/Resolved]
  - Off label use [Recovered/Resolved]
  - Off label use [Recovered/Resolved]
  - Intentional product use issue [Recovered/Resolved]
